FAERS Safety Report 24757039 (Version 1)
Quarter: 2024Q4

REPORT INFORMATION
  Report Type: Spontaneous
  Country: US (occurrence: US)
  Receive Date: 20241220
  Receipt Date: 20241220
  Transmission Date: 20250114
  Serious: Yes (Other)
  Sender: ALEMBIC
  Company Number: US-ALEMBIC PHARMACUETICALS LIMITED-2024SCAL001839

PATIENT

DRUGS (1)
  1. PALIPERIDONE [Suspect]
     Active Substance: PALIPERIDONE
     Indication: Schizoaffective disorder
     Dosage: UNK
     Route: 065

REACTIONS (9)
  - Adrenal insufficiency [Recovering/Resolving]
  - Hypotension [Recovering/Resolving]
  - Fatigue [Recovering/Resolving]
  - Somnolence [Recovering/Resolving]
  - Cortisol decreased [Recovering/Resolving]
  - Treatment noncompliance [Unknown]
  - Withdrawal syndrome [Unknown]
  - Agitation [Unknown]
  - Restlessness [Unknown]
